FAERS Safety Report 4513110-5 (Version None)
Quarter: 2004Q4

REPORT INFORMATION
  Report Type: 
  Country: None (occurrence: None)
  Receive Date: 20040928
  Receipt Date: 20040701
  Transmission Date: 20050328
  Serious: No
  Sender: FDA-Public Use
  Company Number: 04P-163-0265405-00

PATIENT
  Age: 52 Year
  Sex: Female
  Weight: 53.5244 kg

DRUGS (13)
  1. HUMIRA [Suspect]
     Indication: RHEUMATOID ARTHRITIS
     Dosage: 40 MG, 1 IN 2 WK, SUBCUTANEOUS
     Route: 058
     Dates: start: 20031208
  2. VICODIN [Concomitant]
  3. CELECOXIB [Concomitant]
  4. TRAMADOL HCL [Concomitant]
  5. AZATHIOPRINE [Concomitant]
  6. FUROSEMIDE [Concomitant]
  7. METOCLOPRAMIDE [Concomitant]
  8. MEGESTROL [Concomitant]
  9. PANTOPRAZOLE [Concomitant]
  10. ADVAIR [Concomitant]
  11. POTASSIUM [Concomitant]
  12. ASPIRIN [Concomitant]
  13. CITALOPRAM HYDROBROMIDE [Concomitant]

REACTIONS (4)
  - DRUG EFFECT DECREASED [None]
  - ERYTHEMA [None]
  - PAIN IN EXTREMITY [None]
  - SWELLING [None]
